FAERS Safety Report 24385855 (Version 1)
Quarter: 2024Q4

REPORT INFORMATION
  Report Type: Spontaneous
  Country: FR (occurrence: FR)
  Receive Date: 20241001
  Receipt Date: 20241001
  Transmission Date: 20250114
  Serious: Yes (Hospitalization)
  Sender: MYLAN
  Company Number: None

PATIENT
  Age: 24 Year
  Sex: Female
  Weight: 67 kg

DRUGS (2)
  1. PAROXETINE [Suspect]
     Active Substance: PAROXETINE
     Indication: Product used for unknown indication
     Dosage: 30 DOSAGE FORM, QD (20 MG X 30 TABS)
     Route: 048
     Dates: start: 20240814, end: 20240814
  2. VALPROMIDE [Suspect]
     Active Substance: VALPROMIDE
     Indication: Product used for unknown indication
     Dosage: 40 DOSAGE FORM, QD (GASTRO-RESISTANT FILMCOATED TABLET)
     Route: 048
     Dates: start: 20240814, end: 20240814

REACTIONS (4)
  - Poisoning deliberate [Recovered/Resolved]
  - Mydriasis [Recovered/Resolved]
  - Coma [Recovered/Resolved]
  - Tachycardia [Recovered/Resolved]

NARRATIVE: CASE EVENT DATE: 20240814
